FAERS Safety Report 4437321-2 (Version None)
Quarter: 2004Q3

REPORT INFORMATION
  Report Type: 
  Country: None (occurrence: None)
  Receive Date: 20040726
  Receipt Date: 20040413
  Transmission Date: 20050211
  Serious: No
  Sender: FDA-Public Use
  Company Number: USA040363080

PATIENT
  Age: 58 Year
  Sex: Female
  Weight: 61 kg

DRUGS (9)
  1. FORTEO [Suspect]
     Indication: OSTEOPOROSIS
     Dosage: 20 UG DAY
     Dates: start: 20040317
  2. MIACALCIN [Concomitant]
  3. FOSAMAX [Concomitant]
  4. VOLTAREN [Concomitant]
  5. SOMA [Concomitant]
  6. TAGAMET [Concomitant]
  7. ESTROGEN NOS [Concomitant]
  8. CLARINEX [Concomitant]
  9. ATROVENT [Concomitant]

REACTIONS (4)
  - ANXIETY [None]
  - HEADACHE [None]
  - INJECTION SITE HAEMORRHAGE [None]
  - INSOMNIA [None]
